FAERS Safety Report 25232804 (Version 1)
Quarter: 2025Q2

REPORT INFORMATION
  Report Type: Spontaneous
  Country: CN (occurrence: CN)
  Receive Date: 20250424
  Receipt Date: 20250424
  Transmission Date: 20250716
  Serious: Yes (Hospitalization, Other)
  Sender: RANBAXY
  Company Number: CN-SUN PHARMACEUTICAL INDUSTRIES LTD-2025R1-504687

PATIENT
  Age: 76 Year
  Sex: Female
  Weight: 54 kg

DRUGS (9)
  1. CITALOPRAM [Interacting]
     Active Substance: CITALOPRAM
     Indication: Depressive symptom
     Dosage: 20 MILLIGRAM, DAILY MORNING
     Route: 048
  2. CITALOPRAM [Interacting]
     Active Substance: CITALOPRAM
     Dosage: 40 MILLIGRAM, DAILY
     Route: 048
  3. RIFAMPIN [Interacting]
     Active Substance: RIFAMPIN
     Indication: Tuberculosis
     Dosage: 0.6 GRAM, QD
     Route: 048
  4. ETHAMBUTOL [Concomitant]
     Active Substance: ETHAMBUTOL HYDROCHLORIDE
     Indication: Tuberculosis
     Dosage: 1.0 GRAM, QD
     Route: 048
  5. PYRAZINAMIDE [Concomitant]
     Active Substance: PYRAZINAMIDE
     Indication: Tuberculosis
     Route: 048
  6. PYRAZINAMIDE [Concomitant]
     Active Substance: PYRAZINAMIDE
     Dosage: 0.5 GRAM TID
     Route: 048
  7. ZOLPIDEM [Concomitant]
     Active Substance: ZOLPIDEM TARTRATE
     Indication: Insomnia
     Route: 048
  8. RIFAPENTINE [Concomitant]
     Active Substance: RIFAPENTINE
     Indication: Tuberculosis
     Dosage: 0.6 GRAM W2D
     Route: 048
  9. amikacin injection [Concomitant]
     Indication: Tuberculosis
     Dosage: 0.5 GRAM, QD
     Route: 042

REACTIONS (4)
  - Drug level decreased [Unknown]
  - Drug interaction [Unknown]
  - Insomnia [Recovering/Resolving]
  - Disease recurrence [Unknown]
